FAERS Safety Report 13030351 (Version 2)
Quarter: 2017Q1

REPORT INFORMATION
  Report Type: Spontaneous
  Country: IT (occurrence: IT)
  Receive Date: 20161215
  Receipt Date: 20170124
  Transmission Date: 20170428
  Serious: Yes (Hospitalization)
  Sender: FDA-Public Use
  Company Number: IT-GE HEALTHCARE MEDICAL DIAGNOSTICS-VISP-PR-1612S-0692

PATIENT
  Age: 57 Year
  Sex: Male
  Weight: 96 kg

DRUGS (9)
  1. BRILIQUE [Concomitant]
     Active Substance: TICAGRELOR
  2. AERIUS [Concomitant]
     Active Substance: DESLORATADINE
  3. CARDIOASPIRIN [Concomitant]
     Active Substance: ASPIRIN
  4. TOTALIP [Concomitant]
     Active Substance: ATORVASTATIN
  5. VISIPAQUE [Suspect]
     Active Substance: IODIXANOL
     Indication: ACUTE CORONARY SYNDROME
     Dosage: DOSE NOT REPORTED
     Route: 065
  6. CARDICOR [Concomitant]
     Active Substance: BISOPROLOL
  7. VISIPAQUE [Suspect]
     Active Substance: IODIXANOL
     Indication: DIAGNOSTIC PROCEDURE
  8. PANTORC [Concomitant]
     Active Substance: PANTOPRAZOLE SODIUM
  9. TRIATEC [Concomitant]
     Active Substance: RAMIPRIL

REACTIONS (1)
  - Skin exfoliation [Not Recovered/Not Resolved]

NARRATIVE: CASE EVENT DATE: 20161113
